FAERS Safety Report 16174965 (Version 1)
Quarter: 2019Q2

REPORT INFORMATION
  Report Type: Spontaneous
  Country: US (occurrence: US)
  Receive Date: 20190409
  Receipt Date: 20190409
  Transmission Date: 20190711
  Serious: No
  Sender: FDA-Public Use
  Company Number: US-PERRIGO-19US001880

PATIENT
  Age: 86 Year
  Sex: Female
  Weight: 54.88 kg

DRUGS (2)
  1. ACETAMINOPHEN. [Suspect]
     Active Substance: ACETAMINOPHEN
     Indication: ARTHRITIS
     Dosage: 650 MG, 3 TO 4 TIMES DAILY
     Route: 048
     Dates: start: 20190118, end: 201901
  2. ACETAMINOPHEN. [Suspect]
     Active Substance: ACETAMINOPHEN
     Dosage: 1300 TO 1950 MG, UNKNOWN
     Route: 048
     Dates: start: 201901, end: 20190205

REACTIONS (5)
  - Incorrect product administration duration [Recovered/Resolved]
  - Drug ineffective [Unknown]
  - Underdose [Recovered/Resolved]
  - Inappropriate schedule of product administration [Recovered/Resolved]
  - Incorrect dose administered [Recovered/Resolved]

NARRATIVE: CASE EVENT DATE: 201901
